FAERS Safety Report 22284235 (Version 1)
Quarter: 2023Q2

REPORT INFORMATION
  Report Type: Spontaneous
  Country: US (occurrence: US)
  Receive Date: 20230504
  Receipt Date: 20230504
  Transmission Date: 20230721
  Serious: Yes (Other)
  Sender: FDA-Public Use
  Company Number: US-drreddys-SPO/USA/23/0164421

PATIENT
  Age: 15 Year
  Sex: Male

DRUGS (2)
  1. ISOTRETINOIN [Suspect]
     Active Substance: ISOTRETINOIN
     Indication: Product used for unknown indication
     Dosage: 40 - 60 MG/DAY X 6 MONTHS
  2. ISOTRETINOIN [Suspect]
     Active Substance: ISOTRETINOIN
     Dosage: 40 - 60 MG/DAY X 6 MONTHS

REACTIONS (4)
  - Behaviour disorder [Unknown]
  - Psychiatric symptom [Unknown]
  - Affective disorder [Unknown]
  - Skin disorder [Unknown]
